FAERS Safety Report 7536323-7 (Version None)
Quarter: 2011Q2

REPORT INFORMATION
  Report Type: 
  Country: None (occurrence: None)
  Receive Date: 20110602
  Receipt Date: 20110527
  Transmission Date: 20111010
  Serious: Yes (Other)
  Sender: FDA-Public Use
  Company Number: BR-001743

PATIENT
  Sex: Male

DRUGS (1)
  1. NAGLAZYME [Suspect]
     Indication: MUCOPOLYSACCHARIDOSIS VI
     Dosage: DOSE AND FREQUENCY NOTY REPORTED, INTRAVENOUS DRIP
     Route: 041

REACTIONS (3)
  - CERVICAL CORD COMPRESSION [None]
  - CERVICAL SPINAL STENOSIS [None]
  - MYELOMALACIA [None]
